FAERS Safety Report 11178460 (Version 1)
Quarter: 2015Q2

REPORT INFORMATION
  Report Type: Spontaneous
  Country: ZA (occurrence: ZA)
  Receive Date: 20150610
  Receipt Date: 20150610
  Transmission Date: 20150821
  Serious: Yes (Hospitalization)
  Sender: FDA-Public Use
  Company Number: ZA-ASTRAZENECA-2015SE55804

PATIENT
  Sex: Male

DRUGS (4)
  1. TRUSTAN [Suspect]
     Active Substance: ESOMEPRAZOLE
     Indication: GASTROOESOPHAGEAL REFLUX DISEASE
     Route: 048
     Dates: start: 20150123, end: 20150425
  2. ASPIRIN. [Concomitant]
     Active Substance: ASPIRIN
  3. ASPAVOR [Concomitant]
     Active Substance: ATORVASTATIN
  4. CLOPIWIN [Concomitant]
     Active Substance: CLOPIDOGREL BISULFATE

REACTIONS (2)
  - Drug ineffective [Unknown]
  - Gastrooesophageal reflux disease [Unknown]
